FAERS Safety Report 9910440 (Version 1)
Quarter: 2014Q1

REPORT INFORMATION
  Report Type: Spontaneous
  Country: US (occurrence: US)
  Receive Date: 20140219
  Receipt Date: 20140219
  Transmission Date: 20141002
  Serious: Yes (Hospitalization, Other)
  Sender: FDA-Public Use
  Company Number: US-BAXTER-2014BAX007707

PATIENT
  Sex: Female

DRUGS (12)
  1. DIANEAL LOW CALCIUM [Suspect]
     Indication: PERITONEAL DIALYSIS
     Route: 033
     Dates: start: 201308, end: 201401
  2. DIANEAL LOW CALCIUM [Suspect]
     Route: 033
     Dates: start: 20140124
  3. DIANEAL LOW CALCIUM [Suspect]
     Indication: PERITONEAL DIALYSIS
     Route: 033
     Dates: start: 201308, end: 201401
  4. DIANEAL LOW CALCIUM [Suspect]
     Route: 033
     Dates: start: 20140124
  5. DIANEAL LOW CALCIUM [Suspect]
     Indication: PERITONEAL DIALYSIS
     Route: 033
     Dates: start: 201308
  6. DIANEAL LOW CALCIUM [Suspect]
     Route: 033
  7. DIANEAL LOW CALCIUM (ULTRABAG) [Suspect]
     Indication: PERITONEAL DIALYSIS
     Route: 033
     Dates: start: 201308
  8. DIANEAL LOW CALCIUM (ULTRABAG) [Suspect]
     Route: 033
  9. DIANEAL LOW CALCIUM (ULTRABAG) [Suspect]
     Indication: PERITONEAL DIALYSIS
     Route: 033
     Dates: start: 201308
  10. DIANEAL LOW CALCIUM (ULTRABAG) [Suspect]
     Route: 033
  11. DIANEAL LOW CALCIUM (ULTRABAG) [Suspect]
     Indication: PERITONEAL DIALYSIS
     Route: 033
     Dates: start: 201308
  12. DIANEAL LOW CALCIUM (ULTRABAG) [Suspect]
     Route: 033

REACTIONS (7)
  - Peritoneal haemorrhage [Recovered/Resolved]
  - Vaginal infection [Recovered/Resolved]
  - Rectal haemorrhage [Recovered/Resolved]
  - Pneumonia [Recovered/Resolved]
  - Staphylococcal infection [Recovering/Resolving]
  - Local swelling [Recovered/Resolved]
  - Catheter site infection [Recovered/Resolved]
